FAERS Safety Report 6293916-5 (Version None)
Quarter: 2009Q3

REPORT INFORMATION
  Report Type: 
  Country: None (occurrence: None)
  Receive Date: 20090731
  Receipt Date: 20090731
  Transmission Date: 20100115
  Serious: Yes (Other)
  Sender: FDA-Public Use
  Company Number: None

PATIENT
  Sex: Female
  Weight: 40.8237 kg

DRUGS (1)
  1. LAMOTRIGINE [Suspect]
     Dosage: 400MG, EVERY AM, PO
     Route: 048
     Dates: start: 20090201, end: 20090313

REACTIONS (4)
  - EUPHORIC MOOD [None]
  - IRRITABILITY [None]
  - NEGATIVISM [None]
  - PRODUCT SUBSTITUTION ISSUE [None]
